FAERS Safety Report 10394836 (Version 1)
Quarter: 2014Q3

REPORT INFORMATION
  Report Type: Spontaneous
  Country: US (occurrence: US)
  Receive Date: 20140820
  Receipt Date: 20140820
  Transmission Date: 20150326
  Serious: No
  Sender: FDA-Public Use
  Company Number: US-BIOGENIDEC-2014BI080968

PATIENT
  Age: 29 Year
  Sex: Male

DRUGS (2)
  1. TECFIDERA [Suspect]
     Active Substance: DIMETHYL FUMARATE
     Indication: RELAPSING-REMITTING MULTIPLE SCLEROSIS
     Dates: start: 201309
  2. ALKA SELTZER [Concomitant]
     Active Substance: ANHYDROUS CITRIC ACID\ASPIRIN\SODIUM BICARBONATE
     Indication: FAECES SOFT

REACTIONS (14)
  - Dysphagia [Not Recovered/Not Resolved]
  - Gastric disorder [Unknown]
  - Decreased appetite [Unknown]
  - Eructation [Unknown]
  - Faeces hard [Unknown]
  - Faeces soft [Unknown]
  - General symptom [Unknown]
  - Multiple sclerosis relapse [Unknown]
  - Diarrhoea [Unknown]
  - Speech disorder [Unknown]
  - Slow speech [Unknown]
  - Feeling abnormal [Unknown]
  - Herpes zoster [Unknown]
  - Regurgitation [Unknown]

NARRATIVE: CASE EVENT DATE: 2013
